FAERS Safety Report 18712834 (Version 2)
Quarter: 2021Q1

REPORT INFORMATION
  Report Type: Spontaneous
  Country: US (occurrence: US)
  Receive Date: 20210107
  Receipt Date: 20210323
  Transmission Date: 20210419
  Serious: No
  Sender: FDA-Public Use
  Company Number: US-BIOVITRUM-2021US0134

PATIENT
  Age: 23 Day
  Sex: Male
  Weight: 3.67 kg

DRUGS (4)
  1. SYNAGIS [Suspect]
     Active Substance: PALIVIZUMAB
     Indication: ATRIAL SEPTAL DEFECT
     Dosage: SYNAGIS 50MG/0.5ML VL LIQUID
     Route: 030
     Dates: start: 20201201
  2. VITAMIN D?400 10 MCG TABLET [Concomitant]
     Dosage: VITAMIN D?400
  3. LASIX 20 MG TABLET [Concomitant]
  4. SYNAGIS [Suspect]
     Active Substance: PALIVIZUMAB
     Indication: COARCTATION OF THE AORTA

REACTIONS (1)
  - Hypersomnia [Recovered/Resolved]

NARRATIVE: CASE EVENT DATE: 20201201
